FAERS Safety Report 18366892 (Version 1)
Quarter: 2020Q4

REPORT INFORMATION
  Report Type: Report from Study
  Country: AU (occurrence: AU)
  Receive Date: 20201009
  Receipt Date: 20201009
  Transmission Date: 20210114
  Serious: Yes (Other)
  Sender: FDA-Public Use
  Company Number: AU-JNJFOC-20200834763

PATIENT
  Age: 60 Year
  Sex: Male
  Weight: 100 kg

DRUGS (2)
  1. REMICADE [Suspect]
     Active Substance: INFLIXIMAB
     Indication: CROHN^S DISEASE
     Dosage: 600 MG 8/52
     Route: 042
     Dates: start: 20200708
  2. REMICADE [Suspect]
     Active Substance: INFLIXIMAB
     Dosage: 600MG 8/52
     Route: 042
     Dates: start: 20200819

REACTIONS (3)
  - Skin neoplasm excision [Recovered/Resolved]
  - Crohn^s disease [Not Recovered/Not Resolved]
  - Therapeutic response decreased [Unknown]

NARRATIVE: CASE EVENT DATE: 20200802
